FAERS Safety Report 6099001-X (Version None)
Quarter: 2009Q1

REPORT INFORMATION
  Report Type: 
  Country: None (occurrence: None)
  Receive Date: 20090302
  Receipt Date: 20090216
  Transmission Date: 20090719
  Serious: Yes (Death)
  Sender: FDA-Public Use
  Company Number: FI-ROCHE-614956

PATIENT
  Age: 39 Year
  Sex: Male

DRUGS (1)
  1. XELODA [Suspect]
     Indication: COLORECTAL CANCER
     Dosage: FREQUENCY WAS REPORTED AS UNKNOWN
     Route: 048
     Dates: start: 20090201, end: 20090201

REACTIONS (2)
  - CARDIAC DISORDER [None]
  - HEADACHE [None]
